FAERS Safety Report 5430910-8 (Version None)
Quarter: 2007Q3

REPORT INFORMATION
  Report Type: 
  Country: None (occurrence: None)
  Receive Date: 20070828
  Receipt Date: 20070813
  Transmission Date: 20080115
  Serious: Yes (Other)
  Sender: FDA-Public Use
  Company Number: 2007RR-09256

PATIENT
  Age: 60 Year
  Sex: Male

DRUGS (2)
  1. CLARITHROMYCIN [Suspect]
     Dosage: 500 MG,
  2. ATORVASTATIN RANBAXY 20MG (ATORVASTATIN) UNKNOWN [Concomitant]

REACTIONS (10)
  - ABSCESS [None]
  - AGRANULOCYTOSIS [None]
  - CELLULITIS [None]
  - INFLUENZA LIKE ILLNESS [None]
  - NIGHT SWEATS [None]
  - ORAL CANDIDIASIS [None]
  - PALLOR [None]
  - TACHYCARDIA [None]
  - TONGUE DISORDER [None]
  - WEIGHT DECREASED [None]
